FAERS Safety Report 9549209 (Version 2)
Quarter: 2013Q3

REPORT INFORMATION
  Report Type: Report from Study
  Country: US (occurrence: US)
  Receive Date: 20130924
  Receipt Date: 20130924
  Transmission Date: 20140515
  Serious: Yes (Hospitalization)
  Sender: FDA-Public Use
  Company Number: US-ACTELION-A-US2012-66713

PATIENT
  Age: 31 Year
  Sex: Female

DRUGS (10)
  1. VELETRI [Suspect]
     Indication: PULMONARY ARTERIAL HYPERTENSION
     Dosage: 66 NG/KG, PER MIN
     Route: 042
     Dates: start: 20110403
  2. VELETRI [Suspect]
     Dosage: 45 NG/KG, PER MIN
     Route: 042
     Dates: start: 20110303
  3. TRACLEER [Concomitant]
     Indication: PULMONARY ARTERIAL HYPERTENSION
     Route: 048
  4. SILDENAFIL [Concomitant]
  5. BUMEX [Concomitant]
  6. SPIRONOLACTONE [Concomitant]
  7. HEPARIN [Concomitant]
  8. TORSEMIDE [Concomitant]
  9. POTASSIUM [Concomitant]
  10. METOLAZONE [Concomitant]

REACTIONS (6)
  - Hypokalaemia [Recovering/Resolving]
  - Central venous catheterisation [Unknown]
  - Device occlusion [Unknown]
  - Device related infection [Recovered/Resolved]
  - Nasopharyngitis [Recovered/Resolved]
  - Diarrhoea [Recovering/Resolving]
